FAERS Safety Report 17710470 (Version 1)
Quarter: 2020Q2

REPORT INFORMATION
  Report Type: Spontaneous
  Country: IN (occurrence: IN)
  Receive Date: 20200427
  Receipt Date: 20200427
  Transmission Date: 20200714
  Serious: Yes (Hospitalization, Other)
  Sender: FDA-Public Use
  Company Number: IN-CIPLA LTD.-2020IN03025

PATIENT

DRUGS (1)
  1. LEVOFLOX [Suspect]
     Active Substance: LEVOFLOXACIN
     Indication: PROSTATITIS
     Dosage: UNK, 500
     Route: 042

REACTIONS (18)
  - Gastrointestinal oedema [Recovering/Resolving]
  - Hypoxia [Recovering/Resolving]
  - Chest pain [Recovered/Resolved]
  - Peripheral swelling [Unknown]
  - Decreased appetite [Recovered/Resolved]
  - Diarrhoea [Recovered/Resolved]
  - Irritability [Unknown]
  - Ascites [Recovering/Resolving]
  - Abdominal distension [Recovering/Resolving]
  - Dysphagia [Recovered/Resolved]
  - Injection site pruritus [Unknown]
  - Pulmonary congestion [Unknown]
  - Pleural effusion [Unknown]
  - Pneumonia [Unknown]
  - Feeling abnormal [Unknown]
  - Abdominal pain [Recovering/Resolving]
  - Vomiting [Recovered/Resolved]
  - Nausea [Recovered/Resolved]
